FAERS Safety Report 7552360-0 (Version None)
Quarter: 2011Q2

REPORT INFORMATION
  Report Type: 
  Country: None (occurrence: None)
  Receive Date: 20110616
  Receipt Date: 20080509
  Transmission Date: 20111010
  Serious: Yes (Death, Hospitalization, Other)
  Sender: FDA-Public Use
  Company Number: PHHY2008CA03583

PATIENT
  Sex: Male

DRUGS (7)
  1. RISPERDAL [Concomitant]
  2. FLOMAX [Concomitant]
  3. CLOZARIL [Suspect]
     Indication: SCHIZOPHRENIA
     Dosage: 300 MG, UNK
     Dates: start: 19980201
  4. METFORMIN HCL [Concomitant]
  5. NORVASC [Concomitant]
  6. KEMADRIN [Concomitant]
  7. ASPIRIN [Concomitant]

REACTIONS (4)
  - INTRACRANIAL HAEMATOMA [None]
  - DEATH [None]
  - FALL [None]
  - LOSS OF CONSCIOUSNESS [None]
